FAERS Safety Report 18632604 (Version 2)
Quarter: 2021Q1

REPORT INFORMATION
  Report Type: Spontaneous
  Country: US (occurrence: US)
  Receive Date: 20201218
  Receipt Date: 20210329
  Transmission Date: 20210419
  Serious: No
  Sender: FDA-Public Use
  Company Number: US-KYOWAKIRIN-2020BKK021926

PATIENT

DRUGS (2)
  1. POTELIGEO [Suspect]
     Active Substance: MOGAMULIZUMAB-KPKC
     Indication: TROPICAL SPASTIC PARESIS
     Dosage: 3 INFUSIONS
     Route: 065
  2. POTELIGEO [Suspect]
     Active Substance: MOGAMULIZUMAB-KPKC
     Dosage: UNK
     Route: 065
     Dates: start: 20200827, end: 20200827

REACTIONS (14)
  - Bradykinesia [Unknown]
  - Adverse event [Not Recovered/Not Resolved]
  - Dry skin [Recovering/Resolving]
  - Dandruff [Recovering/Resolving]
  - Cystitis [Unknown]
  - Drug effective for unapproved indication [Unknown]
  - Inflammation [Recovering/Resolving]
  - Muscle spasticity [Unknown]
  - Condition aggravated [Unknown]
  - Rash [Recovered/Resolved]
  - Sensory disturbance [Not Recovered/Not Resolved]
  - CD8 lymphocytes increased [Unknown]
  - Balance disorder [Unknown]
  - Muscle spasms [Unknown]
